FAERS Safety Report 24705186 (Version 4)
Quarter: 2024Q4

REPORT INFORMATION
  Report Type: Spontaneous
  Country: CZ (occurrence: CZ)
  Receive Date: 20241206
  Receipt Date: 20241226
  Transmission Date: 20250115
  Serious: Yes (Hospitalization, Other)
  Sender: AUROBINDO
  Company Number: CZ-TEVA-VS-3265079

PATIENT
  Age: 75 Year
  Sex: Female

DRUGS (35)
  1. CITALOPRAM HYDROBROMIDE [Interacting]
     Active Substance: CITALOPRAM HYDROBROMIDE
     Indication: Intellectual disability
     Dosage: 20 MILLIGRAM (CITALOPRAM 20 MG TBL. PER OS: 1-1/2-0)
     Route: 048
  2. CITALOPRAM HYDROBROMIDE [Interacting]
     Active Substance: CITALOPRAM HYDROBROMIDE
     Indication: Agitation
     Dosage: 20 MILLIGRAM (CITALOPRAM 20 MG TBL. PER OS: 1-1/2-0)
     Route: 048
  3. CITALOPRAM HYDROBROMIDE [Interacting]
     Active Substance: CITALOPRAM HYDROBROMIDE
     Indication: Depressive symptom
  4. CITALOPRAM HYDROBROMIDE [Interacting]
     Active Substance: CITALOPRAM HYDROBROMIDE
     Indication: Insomnia
  5. OLANZAPINE [Interacting]
     Active Substance: OLANZAPINE
     Indication: Intellectual disability
     Dosage: 5 MILLIGRAM, ONCE A DAY (OLANZAPIN 10 MG TBL. 0-0-1/2)
     Route: 048
  6. OLANZAPINE [Interacting]
     Active Substance: OLANZAPINE
     Indication: Agitation
     Dosage: 5 MILLIGRAM, ONCE A DAY (OLANZAPIN 10 MG TBL. 0-0-1/2)
     Route: 048
  7. OLANZAPINE [Interacting]
     Active Substance: OLANZAPINE
     Indication: Depressive symptom
  8. OLANZAPINE [Interacting]
     Active Substance: OLANZAPINE
     Indication: Insomnia
  9. AMLODIPINE BESYLATE\PERINDOPRIL TOSYLATE [Suspect]
     Active Substance: AMLODIPINE BESYLATE\PERINDOPRIL TOSYLATE
     Indication: Hypertension
     Dosage: 1 DOSAGE FORM, ONCE A DAY
     Route: 048
  10. MIRTAZAPINE [Suspect]
     Active Substance: MIRTAZAPINE
     Indication: Intellectual disability
     Dosage: 15 MILLIGRAM, ONCE A DAY (30 MG 0-0-1/2)
     Route: 048
  11. MIRTAZAPINE [Suspect]
     Active Substance: MIRTAZAPINE
     Indication: Agitation
     Dosage: 15 MILLIGRAM, ONCE A DAY (30 MG 0-0-1/2)
     Route: 048
  12. MIRTAZAPINE [Suspect]
     Active Substance: MIRTAZAPINE
     Indication: Depressive symptom
  13. MIRTAZAPINE [Suspect]
     Active Substance: MIRTAZAPINE
     Indication: Insomnia
  14. OMEPRAZOLE [Interacting]
     Active Substance: OMEPRAZOLE
     Indication: Product used for unknown indication
     Dosage: 20 MILLIGRAM (OMEPRAZOL)
     Route: 048
  15. QUETIAPINE [Interacting]
     Active Substance: QUETIAPINE
     Indication: Intellectual disability
     Dosage: 100 MILLIGRAM, TWO TIMES A DAY ((QUETIAPINE, 0-1-1))
     Route: 048
  16. QUETIAPINE [Interacting]
     Active Substance: QUETIAPINE
     Indication: Agitation
  17. QUETIAPINE [Interacting]
     Active Substance: QUETIAPINE
     Indication: Insomnia
  18. QUETIAPINE [Interacting]
     Active Substance: QUETIAPINE
     Indication: Depressive symptom
  19. RILMENIDINE [Suspect]
     Active Substance: RILMENIDINE
     Indication: Hypertension
     Dosage: 1 MILLIGRAM, ONCE A DAY (0-0-1)
     Route: 048
  20. TIAPRIDE [Suspect]
     Active Substance: TIAPRIDE
     Indication: Restlessness
     Dosage: 100 MILLIGRAM (1/2-1/2-1/2)
     Route: 048
  21. TIAPRIDE [Suspect]
     Active Substance: TIAPRIDE
     Indication: Intellectual disability
     Dosage: 150 MILLIGRAM (50 MILLIGRAM, TID)
     Route: 048
  22. TIAPRIDE [Suspect]
     Active Substance: TIAPRIDE
     Indication: Agitation
  23. TIAPRIDE [Suspect]
     Active Substance: TIAPRIDE
     Indication: Depressive symptom
  24. TIAPRIDE [Suspect]
     Active Substance: TIAPRIDE
     Indication: Insomnia
  25. ASPIRIN [Concomitant]
     Active Substance: ASPIRIN
     Indication: Transient ischaemic attack
     Dosage: 100 MILLIGRAM, ONCE A DAY (0-1-0)
     Route: 048
  26. ASPIRIN [Concomitant]
     Active Substance: ASPIRIN
     Indication: Myocardial ischaemia
  27. ASPIRIN [Concomitant]
     Active Substance: ASPIRIN
     Indication: Antiplatelet therapy
  28. METFORMIN [Concomitant]
     Active Substance: METFORMIN HYDROCHLORIDE
     Indication: Type 2 diabetes mellitus
     Dosage: 500 MILLIGRAM, TWO TIMES A DAY (1000 ONCE A DAY)
     Route: 048
  29. ATORVASTATIN [Concomitant]
     Active Substance: ATORVASTATIN
     Indication: Hypercholesterolaemia
     Dosage: 10 MILLIGRAM, ONCE A DAY (10 MILLIGRAM, QD)
     Route: 048
  30. CLONAZEPAM [Concomitant]
     Active Substance: CLONAZEPAM
     Indication: Intellectual disability
     Dosage: 2.5 MG/ML0-0-5 DROPS
     Route: 048
  31. DIAZEPAM [Concomitant]
     Active Substance: DIAZEPAM
     Indication: Muscle twitching
     Dosage: UNK
     Route: 065
  32. CLOPIDOGREL [Concomitant]
     Active Substance: CLOPIDOGREL BISULFATE
     Indication: Antiplatelet therapy
     Dosage: UNK
     Route: 065
  33. CLOPIDOGREL [Concomitant]
     Active Substance: CLOPIDOGREL BISULFATE
     Indication: Myocardial ischaemia
  34. PANTOPRAZOLE [Concomitant]
     Active Substance: PANTOPRAZOLE
     Indication: Product used for unknown indication
     Dosage: 40 MILLIGRAM
     Route: 065
  35. BISOPROLOL [Concomitant]
     Active Substance: BISOPROLOL
     Indication: Product used for unknown indication
     Dosage: 2.5 MILLIGRAM
     Route: 065

REACTIONS (12)
  - Electrocardiogram QT prolonged [Recovered/Resolved]
  - Mineral deficiency [Recovered/Resolved]
  - Hyponatraemia [Recovered/Resolved]
  - Drug interaction [Recovered/Resolved]
  - Hypotension [Recovered/Resolved]
  - Mineral metabolism disorder [Recovered/Resolved]
  - Electrocardiogram QT interval [Recovered/Resolved]
  - Toxicity to various agents [Unknown]
  - Hypochloraemia [Unknown]
  - Electrolyte imbalance [Unknown]
  - Potentiating drug interaction [Unknown]
  - Drug ineffective [Unknown]
